FAERS Safety Report 16170011 (Version 1)
Quarter: 2019Q2

REPORT INFORMATION
  Report Type: Spontaneous
  Country: CN (occurrence: CN)
  Receive Date: 20190408
  Receipt Date: 20190408
  Transmission Date: 20190711
  Serious: Yes (Other)
  Sender: FDA-Public Use
  Company Number: CN-PFIZER INC-2019144924

PATIENT
  Age: 4 Year
  Sex: Male
  Weight: 12 kg

DRUGS (4)
  1. PHARMORUBICIN [Suspect]
     Active Substance: EPIRUBICIN
     Indication: NEUROBLASTOMA
     Dosage: 15.5 MG, 1X/DAY
     Route: 041
     Dates: start: 20190319, end: 20190319
  2. CYCLOPHOSPHAMIDE. [Suspect]
     Active Substance: CYCLOPHOSPHAMIDE
     Indication: NEUROBLASTOMA
     Dosage: 0.450 G, 1X/DAY
     Route: 041
     Dates: start: 20190320, end: 20190321
  3. ETOPOSIDE. [Suspect]
     Active Substance: ETOPOSIDE
     Indication: CHEMOTHERAPY
     Dosage: 0.05 G, 1X/DAY
     Route: 041
     Dates: start: 20190319, end: 20190322
  4. NUO XIN [Concomitant]
     Active Substance: CISPLATIN
     Indication: CHEMOTHERAPY
     Dosage: 30.000 MG, 1X/DAY
     Route: 041
     Dates: start: 20190317, end: 20190317

REACTIONS (3)
  - Hepatic function abnormal [Recovering/Resolving]
  - Bone marrow failure [Recovering/Resolving]
  - Renal impairment [Recovering/Resolving]

NARRATIVE: CASE EVENT DATE: 20190323
